FAERS Safety Report 8550114-X (Version None)
Quarter: 2012Q3

REPORT INFORMATION
  Report Type: 
  Country: None (occurrence: None)
  Receive Date: 20120730
  Receipt Date: 20120727
  Transmission Date: 20120928
  Serious: Yes (Death)
  Sender: FDA-Public Use
  Company Number: AU-B.I. PHARMACEUTICALS,INC./RIDGEFIELD-2012-AU-01247AU

PATIENT
  Sex: Male

DRUGS (10)
  1. METFORMIN HCL [Concomitant]
  2. ACETAMINOPHEN [Concomitant]
  3. VENTOLIN [Concomitant]
  4. COLOXYL AND SENNA [Concomitant]
  5. TEMAZEPAM [Concomitant]
  6. PRADAXA [Suspect]
     Dosage: 220 MG
     Dates: start: 20110905, end: 20120531
  7. CRESTOR [Concomitant]
  8. SYMBICORT [Concomitant]
  9. MIRTAZAPINE [Concomitant]
  10. LACTULOSE [Concomitant]

REACTIONS (1)
  - BRONCHOPNEUMONIA [None]
